FAERS Safety Report 4819714-4 (Version None)
Quarter: 2005Q4

REPORT INFORMATION
  Report Type: 
  Country: None (occurrence: None)
  Receive Date: 20051102
  Receipt Date: 20051022
  Transmission Date: 20060501
  Serious: Yes (Other)
  Sender: FDA-Public Use
  Company Number: PHEH2005US11799

PATIENT
  Sex: Female

DRUGS (2)
  1. LAMISIL [Suspect]
     Indication: TINEA PEDIS
     Dosage: QD, TOPICAL
     Route: 061
     Dates: start: 20051005, end: 20051007
  2. ANTIBIOTICS (NO INGREDIENTS/SUBSTANCES) [Concomitant]

REACTIONS (7)
  - APPLICATION SITE REACTION [None]
  - CONTUSION [None]
  - ERYTHEMA [None]
  - LOWER EXTREMITY MASS [None]
  - MUSCLE TIGHTNESS [None]
  - OEDEMA PERIPHERAL [None]
  - SKIN DISCOLOURATION [None]
